FAERS Safety Report 12755543 (Version 1)
Quarter: 2016Q3

REPORT INFORMATION
  Report Type: Spontaneous
  Country: AR (occurrence: AR)
  Receive Date: 20160916
  Receipt Date: 20160916
  Transmission Date: 20161109
  Serious: Yes (Hospitalization)
  Sender: FDA-Public Use
  Company Number: AR-PFIZER INC-2016419967

PATIENT
  Age: 36 Year
  Sex: Female

DRUGS (1)
  1. INLYTA [Suspect]
     Active Substance: AXITINIB
     Indication: RENAL CANCER
     Dosage: 10 MG, DAILY
     Dates: start: 20160220

REACTIONS (3)
  - Lymph node pain [Recovering/Resolving]
  - Agitation [Not Recovered/Not Resolved]
  - Bone lesion [Unknown]

NARRATIVE: CASE EVENT DATE: 201608
